FAERS Safety Report 8779623 (Version 1)
Quarter: 2012Q4

REPORT INFORMATION
  Report Type: 
  Country: FR (occurrence: FR)
  Receive Date: 20120912
  Receipt Date: 20120912
  Transmission Date: 20130627
  Serious: Yes (Life-Threatening, Hospitalization)
  Sender: FDA-Public Use
  Company Number: FR-BRISTOL-MYERS SQUIBB COMPANY-16927782

PATIENT
  Age: 82 Year
  Sex: Female

DRUGS (10)
  1. HYDREA CAPS 500 MG [Suspect]
     Indication: ESSENTIAL THROMBOCYTHAEMIA
     Route: 048
     Dates: end: 20120529
  2. ALLOPURINOL [Suspect]
     Indication: HYPERURICAEMIA
     Route: 048
     Dates: end: 20120531
  3. PLAQUENIL [Suspect]
     Indication: RHEUMATOID ARTHRITIS
     Route: 048
     Dates: end: 20120529
  4. KARDEGIC [Concomitant]
  5. SOLUPRED [Concomitant]
  6. DOLIPRANE [Concomitant]
  7. EUPANTOL [Concomitant]
  8. IMOVANE [Concomitant]
  9. LASILIX [Concomitant]
  10. PHOSPHALUGEL [Concomitant]

REACTIONS (3)
  - Pancytopenia [Recovered/Resolved]
  - Bone marrow failure [Recovered/Resolved]
  - Hip fracture [Unknown]
